FAERS Safety Report 24749631 (Version 2)
Quarter: 2024Q4

REPORT INFORMATION
  Report Type: Spontaneous
  Country: IL (occurrence: IL)
  Receive Date: 20241218
  Receipt Date: 20241223
  Transmission Date: 20250114
  Serious: Yes (Other)
  Sender: PFIZER
  Company Number: IL-PFIZER INC-202400326398

PATIENT
  Age: 4 Year
  Sex: Male

DRUGS (1)
  1. NGENLA [Suspect]
     Active Substance: SOMATROGON-GHLA
     Indication: Growth hormone deficiency
     Dosage: 8 MG, WEEKLY
     Dates: start: 20240701

REACTIONS (2)
  - Lack of injection site rotation [Not Recovered/Not Resolved]
  - Injection site atrophy [Not Recovered/Not Resolved]

NARRATIVE: CASE EVENT DATE: 20241214
